FAERS Safety Report 5815329-X (Version None)
Quarter: 2008Q3

REPORT INFORMATION
  Report Type: 
  Country: None (occurrence: None)
  Receive Date: 20080718
  Receipt Date: 20080710
  Transmission Date: 20090109
  Serious: Yes (Life-Threatening, Hospitalization)
  Sender: FDA-Public Use
  Company Number: CH-ELI_LILLY_AND_COMPANY-CH200807002249

PATIENT
  Age: 53 Year
  Sex: Female

DRUGS (13)
  1. ZYPREXA [Suspect]
     Indication: DEPRESSION
     Dosage: 5 MG,
     Route: 048
     Dates: end: 20080101
  2. ZYPREXA [Interacting]
     Dosage: 35 MG, UNK
     Dates: start: 20080629
  3. CITALOPRAM HYDROBROMIDE [Interacting]
     Indication: DEPRESSION
     Dosage: 40 MG, UNK
     Route: 048
     Dates: end: 20080101
  4. CITALOPRAM HYDROBROMIDE [Interacting]
     Dosage: 40 MG, UNK
     Dates: start: 20080629
  5. SEROQUEL [Interacting]
     Indication: DEPRESSION
     Dosage: 250 MG, UNK
     Route: 048
     Dates: start: 20080629
  6. LORAZEPAM [Interacting]
     Indication: DEPRESSION
     Dosage: 1 MG, UNK
     Route: 048
     Dates: end: 20080101
  7. LORAZEPAM [Interacting]
     Dosage: 30 MG, UNK
     Dates: start: 20080629
  8. DEPAKENE [Interacting]
     Dosage: 500 MG,
     Route: 048
  9. PANTOPRAZOLE SODIUM [Concomitant]
     Route: 048
  10. CEFACET [Concomitant]
     Dosage: 20 MG, UNK
     Dates: start: 20080629
  11. IRFEN [Concomitant]
     Dosage: 600 MG, UNK
  12. TRAMADOL HYDROCHLORIDE [Concomitant]
     Dosage: 800 MG, UNK
  13. ALCOHOL [Concomitant]

REACTIONS (6)
  - COMA [None]
  - DELIRIUM [None]
  - DRUG INTERACTION [None]
  - INTENTIONAL OVERDOSE [None]
  - POISONING [None]
  - SUICIDE ATTEMPT [None]
